FAERS Safety Report 23573901 (Version 1)
Quarter: 2024Q1

REPORT INFORMATION
  Report Type: Spontaneous
  Country: US (occurrence: US)
  Receive Date: 20240228
  Receipt Date: 20240228
  Transmission Date: 20240410
  Serious: Yes (Life-Threatening, Hospitalization, Other)
  Sender: FDA-Public Use
  Company Number: US-MLMSERVICE-20240208-4819372-1

PATIENT

DRUGS (1)
  1. PREDNISONE [Suspect]
     Active Substance: PREDNISONE
     Indication: Asthma
     Dosage: LONG-TERM USER
     Route: 065

REACTIONS (4)
  - Carotid artery occlusion [Recovering/Resolving]
  - Cerebral infarction [Recovering/Resolving]
  - Aortic dissection [Recovering/Resolving]
  - Carotid artery dissection [Recovering/Resolving]
